FAERS Safety Report 4431767-4 (Version None)
Quarter: 2004Q3

REPORT INFORMATION
  Report Type: 
  Country: None (occurrence: None)
  Receive Date: 20040819
  Receipt Date: 20040809
  Transmission Date: 20050211
  Serious: Yes (Death, Life-Threatening)
  Sender: FDA-Public Use
  Company Number: HQWYE098209AUG04

PATIENT
  Age: 45 Year
  Sex: Female

DRUGS (28)
  1. PANTOPAN (PANTOPRAZOLE, TABLET, DELAYED RELEASE) [Suspect]
     Indication: PROPHYLAXIS
     Dosage: SEE IMAGE
     Dates: start: 20021009, end: 20021018
  2. PANTOPAN (PANTOPRAZOLE, TABLET, DELAYED RELEASE) [Suspect]
     Indication: PROPHYLAXIS
     Dosage: SEE IMAGE
     Dates: start: 20021027
  3. ALUMINUM HYDROXIDE TAB [Suspect]
     Dosage: 4 ML 3X PER 1 DAY
     Dates: start: 20020927, end: 20021018
  4. CALCITROL (CALCIUM CARBONATE/ERGOCALCIFEROL/RETINOL,) [Suspect]
     Dosage: 0.5 UG 1X PER 1 DAY
     Dates: start: 20020927, end: 20021104
  5. CALCIUM CARBONATE (CALCIUM CARBONATE,) [Suspect]
     Dosage: 1 GRAIN 1X PER 1 DAY
     Dates: end: 20021008
  6. CALCIUM LACTOGLUCONATE (CALCIUM LACTOGLUCONATE,) [Suspect]
     Dosage: 1 GRAIN 1X PER 1 DAY
     Dates: end: 20021008
  7. CLAVAMOX (AMOXICILLIN TRIHYDRATE/CLAVULANATE POTASSIUM,) [Suspect]
     Indication: BRONCHOPNEUMONIA
     Dosage: 1200 MG 3X PER 1 DAY INTRAVENOUS
     Route: 042
     Dates: start: 20021004, end: 20021019
  8. CORTISONE ACETATE (CORTISONE ACETATE,) [Suspect]
     Dosage: 25 MG 2X PER 1 DAY
     Dates: start: 20020927, end: 20021102
  9. DIAZEPAM [Suspect]
     Indication: AGITATION
     Dosage: DOSE DAILY ORAL
     Route: 048
     Dates: start: 20021009, end: 20021104
  10. DIAZEPAM [Suspect]
     Indication: HALLUCINATION
     Dosage: DOSE DAILY ORAL
     Route: 048
     Dates: start: 20021009, end: 20021104
  11. FLUDROCORTISONE ACETATE TAB [Suspect]
     Dosage: 4 ML 3X PER 1 DAY
     Dates: start: 20020927, end: 20021024
  12. FUROSEMIDE [Suspect]
     Indication: OLIGURIA
     Dosage: SEE IMAGE
     Dates: start: 20021004, end: 20021015
  13. FUROSEMIDE [Suspect]
     Indication: RENAL IMPAIRMENT
     Dosage: SEE IMAGE
     Dates: start: 20021004, end: 20021015
  14. FUROSEMIDE [Suspect]
     Indication: OLIGURIA
     Dosage: SEE IMAGE
     Dates: start: 20021027
  15. FUROSEMIDE [Suspect]
     Indication: RENAL IMPAIRMENT
     Dosage: SEE IMAGE
     Dates: start: 20021027
  16. HALOPERIDOL [Suspect]
     Indication: AGITATION
     Dosage: DOSE DAILY ORAL
     Route: 048
     Dates: start: 20021009, end: 20021104
  17. HALOPERIDOL [Suspect]
     Indication: HALLUCINATION
     Dosage: DOSE DAILY ORAL
     Route: 048
     Dates: start: 20021009, end: 20021104
  18. ITRACONAZOLE [Suspect]
     Indication: ORAL CANDIDIASIS
     Dosage: 100 MG 1X PER 1 DAY
     Dates: start: 20021009, end: 20021104
  19. LEVOFLOXACIN [Suspect]
     Indication: BRONCHOPNEUMONIA
     Dosage: 500 MG -
     Dates: start: 20021004, end: 20021019
  20. MAGNESIUM HYDROXIDE (MAGNESIUM HYDROXIDE,) [Suspect]
     Dosage: 4 ML 3X PER 1 DAY
     Dates: start: 20020927, end: 20021018
  21. NYSTATIN [Suspect]
     Dosage: 4 ML 3X PER 1 DAY
     Dates: end: 20021008
  22. OMEPRAZOLE [Suspect]
     Dosage: 20 MG 1X PER 1 DAY
     Dates: start: 20020927, end: 20021102
  23. POTASSIUM CANRENOATE (POTASSIUM CANRENOATE,) [Suspect]
     Indication: OLIGURIA
     Dosage: SEE IMAGE
     Dates: start: 20021004, end: 20021015
  24. POTASSIUM CANRENOATE (POTASSIUM CANRENOATE,) [Suspect]
     Indication: RENAL IMPAIRMENT
     Dosage: SEE IMAGE
     Dates: start: 20021004, end: 20021015
  25. POTASSIUM CANRENOATE (POTASSIUM CANRENOATE,) [Suspect]
     Indication: OLIGURIA
     Dosage: SEE IMAGE
     Dates: start: 20021027
  26. POTASSIUM CANRENOATE (POTASSIUM CANRENOATE,) [Suspect]
     Indication: RENAL IMPAIRMENT
     Dosage: SEE IMAGE
     Dates: start: 20021027
  27. CALCIUM GLUCONATE [Concomitant]
  28. POTASSIUM CHLORIDE [Concomitant]

REACTIONS (18)
  - ADRENAL DISORDER [None]
  - AORTIC VALVE SCLEROSIS [None]
  - BLOOD CULTURE POSITIVE [None]
  - BRAIN OEDEMA [None]
  - BRONCHOPNEUMONIA [None]
  - CACHEXIA [None]
  - CALCINOSIS [None]
  - ENDOMETRIAL ATROPHY [None]
  - ENTEROCOCCAL INFECTION [None]
  - HEPATIC FIBROSIS [None]
  - OVARIAN ATROPHY [None]
  - PARATHYROID DISORDER [None]
  - PSEUDOMONAS INFECTION [None]
  - RENAL HAEMORRHAGE [None]
  - SEPTIC SHOCK [None]
  - STAPHYLOCOCCAL INFECTION [None]
  - THYROID ATROPHY [None]
  - TOXIC EPIDERMAL NECROLYSIS [None]
